FAERS Safety Report 4821866-7 (Version None)
Quarter: 2005Q4

REPORT INFORMATION
  Report Type: 
  Country: None (occurrence: None)
  Receive Date: 20051107
  Receipt Date: 20050207
  Transmission Date: 20060501
  Serious: Yes (Other)
  Sender: FDA-Public Use
  Company Number: PHEH2005US01792

PATIENT
  Age: 73 Year
  Sex: Male

DRUGS (3)
  1. GOSERELIN [Concomitant]
  2. BICALUTAMIDE [Concomitant]
  3. AREDIA [Suspect]
     Indication: METASTASES TO BONE

REACTIONS (4)
  - LOCALISED INFECTION [None]
  - OSTEONECROSIS [None]
  - SEQUESTRECTOMY [None]
  - TOOTH EXTRACTION [None]
